FAERS Safety Report 11235215 (Version 3)
Quarter: 2015Q3

REPORT INFORMATION
  Report Type: Spontaneous
  Country: US (occurrence: US)
  Receive Date: 20150702
  Receipt Date: 20150831
  Transmission Date: 20151125
  Serious: Yes (Other)
  Sender: FDA-Public Use
  Company Number: US-BAYER-2015-364590

PATIENT
  Age: 24 Year
  Sex: Female
  Weight: 55.69 kg

DRUGS (1)
  1. MIRENA [Suspect]
     Active Substance: LEVONORGESTREL
     Indication: CONTRACEPTION
     Dosage: 20 MCG/24HR, CONT
     Route: 015
     Dates: start: 20141216, end: 20150402

REACTIONS (4)
  - Connective tissue disorder [None]
  - Hypoaesthesia [None]
  - Peripheral swelling [None]
  - Raynaud^s phenomenon [None]

NARRATIVE: CASE EVENT DATE: 201502
